FAERS Safety Report 9683716 (Version 2)
Quarter: 2013Q4

REPORT INFORMATION
  Report Type: Report from Study
  Country: BE (occurrence: BE)
  Receive Date: 20131112
  Receipt Date: 20131112
  Transmission Date: 20140711
  Serious: Yes (Hospitalization)
  Sender: FDA-Public Use
  Company Number: BE-ABBVIE-13P-013-1085721-00

PATIENT
  Age: 72 Year
  Sex: Male

DRUGS (8)
  1. DUODOPA [Suspect]
     Indication: PARKINSON^S DISEASE
     Dosage: AM DOSE= 7ML, CONTIN DOSE= 3.5ML/H DURING 16HRS, EXTRA DOSE= 1.5ML
     Route: 050
     Dates: start: 20070525, end: 20110103
  2. DUODOPA [Suspect]
     Dosage: DOSAGE CONTINUOUSLY MONITORED AND ADJUSTED
     Route: 050
     Dates: start: 20110103, end: 20111027
  3. DUODOPA [Suspect]
     Dosage: AM DOSE= 7ML, CONTIN DOSE= 3.3ML/H DURING 16HRS, EXTRA DOSE= 1.5ML
     Route: 050
     Dates: start: 20111027, end: 20130502
  4. DUODOPA [Suspect]
     Dosage: AM DOSE= 7ML, CONTIN DOSE= 3ML/H DURING 16HRS, EXTRA DOSE= 1.5ML
     Route: 050
     Dates: start: 20130502, end: 20130527
  5. DUODOPA [Suspect]
     Dosage: AM DOSE= 7ML, CONTIN DOSE= 3.3ML/H DURING 16HRS, EXTRA DOSE=1.5ML
     Route: 050
     Dates: start: 20130527, end: 20130529
  6. DUODOPA [Suspect]
     Dosage: AM DOSE= 7ML, CONTIN DOSE= 3ML/H DURING 16HRS, EXTRA DOSE=1.5ML
     Route: 050
     Dates: start: 20130529, end: 20131021
  7. DUODOPA [Suspect]
     Dosage: AM DOSE= 7ML, CONTIN DOSE= 2.8ML/H DURING 16HRS, EXTRA DOSE=1.5ML
     Route: 050
     Dates: start: 20131021, end: 20131031
  8. DUODOPA [Suspect]
     Dosage: AM DOSE=7ML, CD=2.6ML/H FOR 16HRS AND ED=1.5ML
     Dates: start: 20131031

REACTIONS (8)
  - Prostatic operation [Unknown]
  - Dyskinesia [Recovering/Resolving]
  - Freezing phenomenon [Unknown]
  - Gait disturbance [Unknown]
  - General physical condition abnormal [Unknown]
  - Incontinence [Unknown]
  - Mobility decreased [Unknown]
  - Decreased activity [Unknown]
